FAERS Safety Report 25081296 (Version 2)
Quarter: 2025Q2

REPORT INFORMATION
  Report Type: Spontaneous
  Country: GB (occurrence: GB)
  Receive Date: 20250316
  Receipt Date: 20250428
  Transmission Date: 20250716
  Serious: Yes (Other)
  Sender: AUROBINDO
  Company Number: GB-MHRA-MED-202503012203098420-CWLNR

PATIENT
  Age: 14 Year
  Sex: Female
  Weight: 44 kg

DRUGS (2)
  1. LAMOTRIGINE [Suspect]
     Active Substance: LAMOTRIGINE
     Indication: Epilepsy
     Dosage: 125 MILLIGRAM, TWO TIMES A DAY (125MG MORNING AND NIGHT)
     Route: 048
  2. LAMOTRIGINE [Suspect]
     Active Substance: LAMOTRIGINE
     Dosage: 150 MILLIGRAM, TWO TIMES A DAY (125MG MORNING AND NIGHT)
     Route: 048

REACTIONS (2)
  - Myoclonus [Recovering/Resolving]
  - Medication error [Unknown]

NARRATIVE: CASE EVENT DATE: 20241010
